FAERS Safety Report 5478664-3 (Version None)
Quarter: 2007Q4

REPORT INFORMATION
  Report Type: 
  Country: None (occurrence: None)
  Receive Date: 20071005
  Receipt Date: 20070920
  Transmission Date: 20080405
  Serious: Yes (Hospitalization)
  Sender: FDA-Public Use
  Company Number: IE-GENENTECH-216896

PATIENT
  Sex: Male
  Weight: 95.193 kg

DRUGS (4)
  1. BEVACIZUMAB [Suspect]
     Indication: COLORECTAL CANCER METASTATIC
     Dosage: 475 MG, Q2W
     Route: 042
     Dates: start: 20050510, end: 20050803
  2. FLUOROURACIL [Suspect]
     Indication: COLORECTAL CANCER METASTATIC
     Dosage: 1075 MG, 1/WEEK
     Dates: start: 20050510
  3. FOLINIC ACID [Suspect]
     Indication: COLORECTAL CANCER METASTATIC
     Dosage: 1080 MG, 1/WEEK
     Dates: start: 20050510
  4. ONDANSETRON [Suspect]
     Indication: COLORECTAL CANCER METASTATIC
     Dosage: 8 MG, 1/WEEK
     Dates: start: 20050510

REACTIONS (5)
  - DEHYDRATION [None]
  - DIARRHOEA [None]
  - HYPERTENSION [None]
  - LETHARGY [None]
  - PYREXIA [None]
